FAERS Safety Report 7313668-7 (Version None)
Quarter: 2011Q1

REPORT INFORMATION
  Report Type: 
  Country: None (occurrence: None)
  Receive Date: 20110225
  Receipt Date: 20110218
  Transmission Date: 20110831
  Serious: Yes (Other)
  Sender: FDA-Public Use
  Company Number: JP-PFIZER INC-2010165305

PATIENT
  Age: 5 Year
  Sex: Female
  Weight: 11 kg

DRUGS (14)
  1. ARTIST [Concomitant]
     Indication: CARDIAC FAILURE
     Dosage: 0.8 MG, 2X/DAY
     Route: 048
  2. DIGOSIN [Concomitant]
     Indication: CARDIAC FAILURE
     Dosage: 0.03 MG, 2X/DAY
     Route: 048
  3. ALDACTONE [Concomitant]
     Indication: CARDIAC FAILURE
     Dosage: 10 MG, 2X/DAY
     Route: 048
  4. SILDENAFIL CITRATE [Suspect]
     Indication: PULMONARY ARTERIAL HYPERTENSION
     Dosage: 0.5 MG, 2X/DAY
     Route: 048
     Dates: start: 20100803, end: 20100809
  5. SILDENAFIL CITRATE [Suspect]
     Dosage: 2 MG, 2X/DAY
     Route: 048
     Dates: start: 20100831, end: 20100920
  6. PROCYLIN [Concomitant]
     Indication: CARDIAC FAILURE
     Dosage: 5 UG, 2X/DAY
     Route: 048
  7. ASPIRIN [Concomitant]
     Indication: CARDIAC FAILURE
     Dosage: 15 MG, 2X/DAY
     Route: 048
  8. SILDENAFIL CITRATE [Suspect]
     Dosage: 4 MG, 2X/DAY
     Route: 048
     Dates: start: 20100921, end: 20101018
  9. SILDENAFIL CITRATE [Suspect]
     Dosage: 6 MG, 2X/DAY
     Route: 048
     Dates: start: 20101019, end: 20101115
  10. DIOVAN [Concomitant]
     Indication: CARDIAC FAILURE
     Dosage: 8 MG, 1X/DAY
     Route: 048
  11. LASIX [Concomitant]
     Indication: CARDIAC FAILURE
     Dosage: 10 MG, 2X/DAY
     Route: 048
  12. SILDENAFIL CITRATE [Suspect]
     Indication: CARDIAC FAILURE
     Dosage: 1 MG, 2X/DAY
     Route: 048
     Dates: start: 20100810, end: 20100830
  13. RENIVACE [Concomitant]
     Indication: CARDIAC FAILURE
     Dosage: 0.35 MG, 2X/DAY
     Route: 048
  14. SILDENAFIL CITRATE [Suspect]
     Dosage: 8 MG, 2X/DAY
     Route: 048
     Dates: start: 20101116, end: 20101204

REACTIONS (2)
  - JOINT SWELLING [None]
  - GAIT DISTURBANCE [None]
